FAERS Safety Report 22181948 (Version 26)
Quarter: 2024Q2

REPORT INFORMATION
  Report Type: Spontaneous
  Country: AU (occurrence: AU)
  Receive Date: 20230406
  Receipt Date: 20240627
  Transmission Date: 20240716
  Serious: Yes (Other)
  Sender: FDA-Public Use
  Company Number: AU-PFIZER INC-2018247306

PATIENT
  Age: 74 Year
  Sex: Male

DRUGS (53)
  1. ELELYSO [Suspect]
     Active Substance: TALIGLUCERASE ALFA
     Indication: Gaucher^s disease
     Dosage: EVERY TWO WEEKS
     Route: 041
     Dates: start: 20161225
  2. ELELYSO [Suspect]
     Active Substance: TALIGLUCERASE ALFA
     Dosage: EVERY TWO WEEKS
     Dates: start: 20170314
  3. ELELYSO [Suspect]
     Active Substance: TALIGLUCERASE ALFA
     Dosage: EVERY TWO WEEKS
     Dates: start: 20170327
  4. ELELYSO [Suspect]
     Active Substance: TALIGLUCERASE ALFA
     Dosage: EVERY TWO WEEKS
     Dates: start: 20170413
  5. ELELYSO [Suspect]
     Active Substance: TALIGLUCERASE ALFA
     Dosage: EVERY TWO WEEKS
     Dates: start: 20170424
  6. ELELYSO [Suspect]
     Active Substance: TALIGLUCERASE ALFA
     Dosage: EVERY TWO WEEKS
     Dates: start: 20170702
  7. ELELYSO [Suspect]
     Active Substance: TALIGLUCERASE ALFA
     Dosage: EVERY TWO WEEKS
     Dates: start: 20170829
  8. ELELYSO [Suspect]
     Active Substance: TALIGLUCERASE ALFA
     Dosage: EVERY TWO WEEKS
     Dates: start: 20170910
  9. ELELYSO [Suspect]
     Active Substance: TALIGLUCERASE ALFA
     Dosage: EVERY TWO WEEKS
     Dates: start: 20170926
  10. ELELYSO [Suspect]
     Active Substance: TALIGLUCERASE ALFA
     Dosage: EVERY TWO WEEKS
     Dates: start: 20171010
  11. ELELYSO [Suspect]
     Active Substance: TALIGLUCERASE ALFA
     Dosage: EVERY TWO WEEKS
     Dates: start: 20180108
  12. ELELYSO [Suspect]
     Active Substance: TALIGLUCERASE ALFA
     Dosage: EVERY TWO WEEKS
     Dates: start: 20180115
  13. ELELYSO [Suspect]
     Active Substance: TALIGLUCERASE ALFA
     Dosage: 2/52
     Dates: start: 20180219
  14. ELELYSO [Suspect]
     Active Substance: TALIGLUCERASE ALFA
     Dosage: EVERY TWO WEEKS
     Dates: start: 20180226
  15. ELELYSO [Suspect]
     Active Substance: TALIGLUCERASE ALFA
     Dosage: 2/52
     Dates: start: 20180608
  16. ELELYSO [Suspect]
     Active Substance: TALIGLUCERASE ALFA
     Dosage: 2/52
     Dates: start: 20180619
  17. ELELYSO [Suspect]
     Active Substance: TALIGLUCERASE ALFA
     Dosage: EVERY TWO WEEKS
     Dates: start: 20190113
  18. ELELYSO [Suspect]
     Active Substance: TALIGLUCERASE ALFA
     Dosage: EVERY TWO WEEKS
     Dates: start: 20190129
  19. ELELYSO [Suspect]
     Active Substance: TALIGLUCERASE ALFA
     Dosage: EVERY TWO WEEKS
     Dates: start: 20190211
  20. ELELYSO [Suspect]
     Active Substance: TALIGLUCERASE ALFA
     Dosage: EVERY TWO WEEKS
     Dates: start: 20190312
  21. ELELYSO [Suspect]
     Active Substance: TALIGLUCERASE ALFA
     Dosage: EVERY TWO WEEKS
     Dates: start: 20190325
  22. ELELYSO [Suspect]
     Active Substance: TALIGLUCERASE ALFA
     Dosage: EVERY TWO WEEKS
     Dates: start: 20190423
  23. ELELYSO [Suspect]
     Active Substance: TALIGLUCERASE ALFA
     Dosage: EVERY TWO WEEKS
     Dates: start: 20190503
  24. ELELYSO [Suspect]
     Active Substance: TALIGLUCERASE ALFA
     Dosage: EVERY TWO WEEKS
     Dates: start: 20190527
  25. ELELYSO [Suspect]
     Active Substance: TALIGLUCERASE ALFA
     Dosage: EVERY TWO WEEKS
     Dates: start: 20190603
  26. ELELYSO [Suspect]
     Active Substance: TALIGLUCERASE ALFA
     Dosage: EVERY TWO WEEKS
     Dates: start: 20190722
  27. ELELYSO [Suspect]
     Active Substance: TALIGLUCERASE ALFA
     Dosage: EVERY TWO WEEKS
     Dates: start: 20190729
  28. ELELYSO [Suspect]
     Active Substance: TALIGLUCERASE ALFA
     Dosage: EVERY TWO WEEKS
     Dates: start: 20190805
  29. ELELYSO [Suspect]
     Active Substance: TALIGLUCERASE ALFA
     Dosage: EVERY TWO WEEKS
     Dates: start: 20190812
  30. ELELYSO [Suspect]
     Active Substance: TALIGLUCERASE ALFA
     Dosage: 2/52
     Route: 042
     Dates: start: 20220404
  31. ELELYSO [Suspect]
     Active Substance: TALIGLUCERASE ALFA
     Dosage: FORTNIGHLY
  32. ELELYSO [Suspect]
     Active Substance: TALIGLUCERASE ALFA
     Dosage: FORTNIGHLY
     Dates: start: 20221228
  33. ELELYSO [Suspect]
     Active Substance: TALIGLUCERASE ALFA
     Dosage: 2/52
  34. ELELYSO [Suspect]
     Active Substance: TALIGLUCERASE ALFA
     Dosage: 2600 IU
     Dates: start: 20220123
  35. ELELYSO [Suspect]
     Active Substance: TALIGLUCERASE ALFA
     Dosage: FORTNIGHLY
  36. ELELYSO [Suspect]
     Active Substance: TALIGLUCERASE ALFA
     Dosage: 1800 IU
     Route: 041
     Dates: start: 20230220
  37. ELELYSO [Suspect]
     Active Substance: TALIGLUCERASE ALFA
     Dosage: 800 IU
     Route: 041
     Dates: start: 20230220
  38. ELELYSO [Suspect]
     Active Substance: TALIGLUCERASE ALFA
     Dosage: 2600 IU
     Dates: start: 20230227
  39. ELELYSO [Suspect]
     Active Substance: TALIGLUCERASE ALFA
     Dosage: FORTNIGHLY
  40. ELELYSO [Suspect]
     Active Substance: TALIGLUCERASE ALFA
     Dosage: 2/52
     Dates: start: 20230403
  41. ELELYSO [Suspect]
     Active Substance: TALIGLUCERASE ALFA
     Dosage: 2/52
     Route: 042
     Dates: start: 20230508
  42. ELELYSO [Suspect]
     Active Substance: TALIGLUCERASE ALFA
     Dosage: 2600 IU
     Route: 041
     Dates: start: 20230515
  43. ELELYSO [Suspect]
     Active Substance: TALIGLUCERASE ALFA
     Dosage: 2600 IU
     Route: 041
     Dates: start: 20230529
  44. ELELYSO [Suspect]
     Active Substance: TALIGLUCERASE ALFA
     Dosage: 2600 IU
     Dates: start: 20230607
  45. ELELYSO [Suspect]
     Active Substance: TALIGLUCERASE ALFA
     Dosage: 2600 IU
     Route: 041
     Dates: start: 20230824
  46. ELELYSO [Suspect]
     Active Substance: TALIGLUCERASE ALFA
     Dosage: 2600 IU
     Route: 041
     Dates: start: 20230824
  47. ELELYSO [Suspect]
     Active Substance: TALIGLUCERASE ALFA
     Dosage: 2400 IU
     Dates: start: 20230904
  48. ELELYSO [Suspect]
     Active Substance: TALIGLUCERASE ALFA
     Dosage: 200 IU
     Dates: start: 20230904
  49. ELELYSO [Suspect]
     Active Substance: TALIGLUCERASE ALFA
     Dosage: 2600 IU
     Route: 041
     Dates: start: 20231009
  50. ELELYSO [Suspect]
     Active Substance: TALIGLUCERASE ALFA
     Dosage: 2600 IU
     Route: 041
     Dates: start: 20231016
  51. LERCANIDIPINE HYDROCHLORIDE [Concomitant]
     Active Substance: LERCANIDIPINE HYDROCHLORIDE
     Dosage: 10 MG, 1X/DAY AT NIGHT
  52. ALLOPURINOL [Concomitant]
     Active Substance: ALLOPURINOL
     Dosage: 300 MG, DAILY
  53. CANDESARTAN CILEXETIL\HYDROCHLOROTHIAZIDE [Concomitant]
     Active Substance: CANDESARTAN CILEXETIL\HYDROCHLOROTHIAZIDE
     Dosage: 1 DF (32/12.5 MG), DAILY

REACTIONS (14)
  - Blood pressure systolic increased [Not Recovered/Not Resolved]
  - Polyp [Unknown]
  - Heart rate decreased [Unknown]
  - Influenza like illness [Recovered/Resolved]
  - Oropharyngeal pain [Recovered/Resolved]
  - Chills [Recovered/Resolved]
  - Rhinorrhoea [Recovered/Resolved]
  - Arthralgia [Recovered/Resolved]
  - Pain [Recovered/Resolved]
  - COVID-19 [Recovering/Resolving]
  - Body temperature decreased [Unknown]
  - Off label use [Unknown]
  - Inappropriate schedule of product administration [Unknown]
  - Intentional product misuse [Unknown]

NARRATIVE: CASE EVENT DATE: 20180219
